FAERS Safety Report 6756341-6 (Version None)
Quarter: 2010Q2

REPORT INFORMATION
  Report Type: 
  Country: None (occurrence: None)
  Receive Date: 20100604
  Receipt Date: 20100526
  Transmission Date: 20101027
  Serious: Yes (Other)
  Sender: FDA-Public Use
  Company Number: US-JNJCH-2010013129

PATIENT
  Sex: Female
  Weight: 72.6 kg

DRUGS (11)
  1. ZYRTEC [Suspect]
     Indication: URTICARIA
     Dosage: TEXT:UNKNOWN
     Route: 048
  2. HUMIRA [Suspect]
     Indication: PSORIATIC ARTHROPATHY
     Dosage: TEXT:40MG/ 0.8ML EVERY TWO WEEKS
     Route: 065
  3. PREDNISONE [Suspect]
     Indication: URTICARIA
     Dosage: TEXT:UNKNOWN
     Route: 048
  4. CORTICOSTEROIDS [Suspect]
     Indication: URTICARIA
     Dosage: TEXT:UNKNOWN
     Route: 030
  5. PREGABALIN [Concomitant]
     Indication: FIBROMYALGIA
     Dosage: TEXT:150MG IN THE AM 225MG IN THE PM
     Route: 065
  6. DULOXETINE HYDROCHLORIDE [Concomitant]
     Indication: DEPRESSION
     Dosage: TEXT:60 MG
     Route: 065
  7. TOPIRAMATE [Concomitant]
     Indication: MIGRAINE
     Dosage: TEXT:50MG, 2 IN 1 D
     Route: 065
  8. LORATADINE [Concomitant]
     Indication: HYPERSENSITIVITY
     Dosage: TEXT:10 MG
     Route: 065
  9. PANTOPRAZOLE [Concomitant]
     Indication: DRUG USE FOR UNKNOWN INDICATION
     Dosage: TEXT:20 MG
     Route: 065
  10. SIMVASTATIN [Concomitant]
     Indication: BLOOD CHOLESTEROL
     Dosage: TEXT:40 MG
     Route: 065
  11. LISINOPRIL [Concomitant]
     Indication: HYPERTENSION
     Dosage: TEXT:10 MG
     Route: 065

REACTIONS (4)
  - CONDITION AGGRAVATED [None]
  - CYSTITIS [None]
  - PSORIASIS [None]
  - URTICARIA [None]
